FAERS Safety Report 6138514-9 (Version None)
Quarter: 2009Q1

REPORT INFORMATION
  Report Type: 
  Country: None (occurrence: None)
  Receive Date: 20090331
  Receipt Date: 20090323
  Transmission Date: 20090719
  Serious: Yes (Hospitalization, Other)
  Sender: FDA-Public Use
  Company Number: US-ELI_LILLY_AND_COMPANY-US200812002358

PATIENT
  Sex: Male
  Weight: 128.35 kg

DRUGS (24)
  1. BYETTA [Suspect]
     Dosage: 5 UG, 2/D
     Route: 058
     Dates: start: 20070606, end: 20070614
  2. BYETTA [Suspect]
     Dosage: 10 UG, 2/D
     Route: 058
     Dates: start: 20070615
  3. BYETTA [Suspect]
     Dosage: 10 UG, 2/D
     Route: 058
     Dates: start: 20080215, end: 20080319
  4. PAXIL [Concomitant]
     Dosage: 75 MG, DAILY (1/D)
  5. NEXIUM [Concomitant]
     Dosage: 40 MG, DAILY (1/D)
  6. ACTOS [Concomitant]
     Dosage: 30 MG, DAILY (1/D)
  7. ASPIRIN [Concomitant]
     Dosage: 81 MG, DAILY (1/D)
  8. MONOPRIL [Concomitant]
     Dosage: 40 MG, DAILY (1/D)
  9. VYTORIN [Concomitant]
     Dosage: UNK, DAILY (1/D)
  10. INSULIN [Concomitant]
     Dosage: UNK, AS NEEDED
  11. LANTUS [Concomitant]
     Dosage: 50 U, EACH EVENING
  12. ZOLPIDEM [Concomitant]
     Dosage: 10 MG, EACH EVENING
  13. TRICOR [Concomitant]
     Dosage: 145 MG, DAILY (1/D)
  14. TENORETIC 100 [Concomitant]
  15. OMACOR [Concomitant]
     Dosage: 6 G, DAILY (1/D)
     Route: 048
  16. ATENOLOL W/CHLORTALIDONE [Concomitant]
     Dosage: UNK, EACH MORNING
  17. LISINOPRIL [Concomitant]
     Dosage: 40 MG, EACH MORNING
     Route: 048
  18. CIPROFLOXACIN HYDROCHLORIDE [Concomitant]
  19. CEFDINIR [Concomitant]
     Dates: start: 20070816
  20. GABAPENTIN [Concomitant]
     Dosage: 300 MG, UNK
     Route: 048
  21. PLAVIX [Concomitant]
  22. HYDROCODONE BITARTRATE AND ACETAMINOPHEN [Concomitant]
  23. CEPHALEXIN [Concomitant]
  24. PROPOXYPHENE NAPSYLATE [Concomitant]

REACTIONS (6)
  - BOWEL MOVEMENT IRREGULARITY [None]
  - CHOLELITHIASIS [None]
  - CHRONIC OBSTRUCTIVE PULMONARY DISEASE [None]
  - LIVER FUNCTION TEST ABNORMAL [None]
  - PANCREATITIS [None]
  - PANCREATITIS ACUTE [None]
